FAERS Safety Report 20985525 (Version 1)
Quarter: 2022Q2

REPORT INFORMATION
  Report Type: Spontaneous
  Country: GB (occurrence: GB)
  Receive Date: 20220621
  Receipt Date: 20220621
  Transmission Date: 20220721
  Serious: Yes (Other)
  Sender: FDA-Public Use
  Company Number: GB-MHRA-TPP28827549C7559762YC1654076786206

PATIENT
  Age: 76 Year
  Sex: Male
  Weight: 109 kg

DRUGS (15)
  1. NITROFURANTOIN [Suspect]
     Active Substance: NITROFURANTOIN
     Indication: Ill-defined disorder
     Dosage: 1 DOSAGE FORM, ONCE A DAY (TAKE ONE CAPSULE TWICE DAILY FOR 7 DAYS, TO TREAT
     Route: 065
     Dates: start: 20220530
  2. AMOXICILLIN [Concomitant]
     Active Substance: AMOXICILLIN
     Indication: Product used for unknown indication
     Dosage: 1 DOSAGE FORM, ONCE A DAY
     Route: 065
     Dates: start: 20220405
  3. ASPIRIN [Concomitant]
     Active Substance: ASPIRIN
     Indication: Product used for unknown indication
     Dosage: 1 DOSAGE FORM, ONCE A DAY,UNK,ONE TO BE TAKEN DAILY
     Route: 065
     Dates: start: 20210914
  4. ATORVASTATIN [Concomitant]
     Active Substance: ATORVASTATIN
     Indication: Product used for unknown indication
     Dosage: 1 DOSAGE FORM, ONCE A DAY, ONE TO BE TAKEN EACH DAY
     Route: 065
     Dates: start: 20190802
  5. CEPHALEXIN [Concomitant]
     Active Substance: CEPHALEXIN
     Indication: Product used for unknown indication
     Dosage: 1 DOSAGE FORM, ONCE A DAY,TAKE ONE 3 TIMES/DAY
     Route: 065
     Dates: start: 20220520
  6. ENALAPRIL [Concomitant]
     Active Substance: ENALAPRIL
     Indication: Product used for unknown indication
     Dosage: 1 DOSAGE FORM, ONCE A DAY,ONE TO BE TAKEN DAILY
     Route: 065
     Dates: start: 19990407
  7. FERROUS FUMARATE [Concomitant]
     Active Substance: FERROUS FUMARATE
     Indication: Product used for unknown indication
     Dosage: UNK, ONE TO BE TAKEN TWICE A DAY
     Route: 065
     Dates: start: 20190827
  8. GLUCOPHAGE [Concomitant]
     Active Substance: METFORMIN HYDROCHLORIDE
     Indication: Product used for unknown indication
     Dosage: 2 DOSAGE FORM, ONCE A DAY,TAKE TWO TWICE A DAY-BRAND ONLY
     Route: 065
     Dates: start: 20110523
  9. LACIDIPINE [Concomitant]
     Active Substance: LACIDIPINE
     Indication: Product used for unknown indication
     Dosage: 1 DOSAGE FORM, ONCE A DAY,EACH MORNING
     Route: 065
     Dates: start: 20190215
  10. LEUPROLIDE ACETATE [Concomitant]
     Active Substance: LEUPROLIDE ACETATE
     Indication: Product used for unknown indication
     Dosage: UNK,AS DIRECTED
     Route: 065
     Dates: start: 20171027
  11. MORPHINE SULFATE [Concomitant]
     Active Substance: MORPHINE SULFATE
     Indication: Product used for unknown indication
     Dosage: UNK,2.5ML IF REQUIRED EVERY 2-4 HOURS FOR BREAKTHROUGH PAIN
     Route: 065
     Dates: start: 20220530
  12. MORPHINE SULFATE [Concomitant]
     Active Substance: MORPHINE SULFATE
     Indication: Product used for unknown indication
     Dosage: 3 DOSAGE FORM, TWO TIMES A DAY, TAKE THREE (30MG) EVERY 12 HRS
     Route: 065
     Dates: start: 20211229
  13. INSULIN ASPART [Concomitant]
     Active Substance: INSULIN ASPART
     Indication: Product used for unknown indication
     Dosage: UNK,ASD
     Route: 065
     Dates: start: 20140424
  14. OMEPRAZOLE [Concomitant]
     Active Substance: OMEPRAZOLE
     Indication: Product used for unknown indication
     Dosage: 1 DOSAGE FORM, ONCE A DAY, ONE TO BE TAKEN EACH DAY
     Route: 065
     Dates: start: 20150709
  15. ACETAMINOPHEN [Concomitant]
     Active Substance: ACETAMINOPHEN
     Indication: Pain
     Dosage: 2 DOSAGE FORM, TAKE 2 TABLETS UP TO 4 TIMES/DAY FOR PAIN, MAXI...
     Route: 065
     Dates: start: 20211220

REACTIONS (3)
  - Dizziness [Not Recovered/Not Resolved]
  - Disorientation [Unknown]
  - Malaise [Unknown]

NARRATIVE: CASE EVENT DATE: 20220601
